FAERS Safety Report 18629867 (Version 1)
Quarter: 2020Q4

REPORT INFORMATION
  Report Type: Spontaneous
  Country: AT (occurrence: AT)
  Receive Date: 20201217
  Receipt Date: 20201217
  Transmission Date: 20210114
  Serious: Yes (Hospitalization)
  Sender: FDA-Public Use
  Company Number: AT-PFIZER INC-2020495822

PATIENT
  Age: 42 Year
  Sex: Female

DRUGS (9)
  1. ABILIFY [Suspect]
     Active Substance: ARIPIPRAZOLE
     Dosage: 10 MG
     Route: 065
     Dates: start: 20201112, end: 20201113
  2. SERTRALINE [Concomitant]
     Active Substance: SERTRALINE HYDROCHLORIDE
     Dosage: 25 MG
     Route: 065
     Dates: start: 20201111, end: 20201117
  3. LORAZEPAM. [Suspect]
     Active Substance: LORAZEPAM
     Dosage: UNK
     Route: 065
  4. SERTRALINE [Concomitant]
     Active Substance: SERTRALINE HYDROCHLORIDE
     Dosage: 25 MG
     Route: 065
     Dates: start: 20201005, end: 20201108
  5. ABILIFY [Suspect]
     Active Substance: ARIPIPRAZOLE
     Dosage: 5 MG
     Route: 065
     Dates: start: 20201108, end: 20201112
  6. SERTRALINE [Concomitant]
     Active Substance: SERTRALINE HYDROCHLORIDE
     Dosage: 50 MG, UNK
     Route: 065
     Dates: start: 20201117
  7. TEMESTA [LORAZEPAM] [Concomitant]
     Active Substance: LORAZEPAM
     Dosage: 3.75 MG
     Route: 065
     Dates: start: 20201108, end: 20201117
  8. TEMESTA [LORAZEPAM] [Concomitant]
     Active Substance: LORAZEPAM
     Dosage: 1.25 MG
     Route: 065
     Dates: start: 20201121, end: 20201124
  9. TEMESTA [LORAZEPAM] [Concomitant]
     Active Substance: LORAZEPAM
     Dosage: 2.5 MG
     Route: 065
     Dates: start: 20201117, end: 20201121

REACTIONS (1)
  - Thinking abnormal [Recovering/Resolving]

NARRATIVE: CASE EVENT DATE: 202011
